FAERS Safety Report 7591969-5 (Version None)
Quarter: 2011Q3

REPORT INFORMATION
  Report Type: 
  Country: None (occurrence: None)
  Receive Date: 20110701
  Receipt Date: 20110701
  Transmission Date: 20111222
  Serious: No
  Sender: FDA-Public Use
  Company Number: None

PATIENT
  Age: 54 Year
  Sex: Male
  Weight: 180.5316 kg

DRUGS (2)
  1. PRILOSEC [Suspect]
     Indication: CARDIAC DISORDER
     Dosage: 1X DAY ORAL
     Route: 048
     Dates: start: 20090101, end: 20100101
  2. PROZAC [Suspect]
     Indication: MENTAL DISORDER
     Dosage: 1 X DAY ORAL
     Route: 048
     Dates: start: 20100101

REACTIONS (3)
  - DRUG INTERACTION [None]
  - DEVICE OCCLUSION [None]
  - ANTICONVULSANT DRUG LEVEL INCREASED [None]
